FAERS Safety Report 14845152 (Version 18)
Quarter: 2020Q4

REPORT INFORMATION
  Report Type: Spontaneous
  Country: CA (occurrence: CA)
  Receive Date: 20180504
  Receipt Date: 20201228
  Transmission Date: 20210113
  Serious: Yes (Disabling, Other)
  Sender: FDA-Public Use
  Company Number: CA-ORION CORPORATION ORION PHARMA-TREX2018-1364

PATIENT
  Age: 37 Year
  Sex: Female

DRUGS (47)
  1. METHOTREXATE (TRADE NAME UNKNOWN) [Suspect]
     Active Substance: METHOTREXATE
     Dosage: QWK
     Route: 065
  2. METHOTREXATE (TRADE NAME UNKNOWN) [Suspect]
     Active Substance: METHOTREXATE
     Route: 065
  3. ENBREL [Suspect]
     Active Substance: ETANERCEPT
     Indication: RHEUMATOID ARTHRITIS
     Route: 065
     Dates: end: 20180208
  4. HUMIRA [Suspect]
     Active Substance: ADALIMUMAB
     Indication: RHEUMATOID ARTHRITIS
     Route: 058
  5. LEFLUNOMIDE. [Suspect]
     Active Substance: LEFLUNOMIDE
     Indication: RHEUMATOID ARTHRITIS
     Route: 065
  6. LEFLUNOMIDE. [Suspect]
     Active Substance: LEFLUNOMIDE
     Route: 065
  7. ORENCIA [Suspect]
     Active Substance: ABATACEPT
     Indication: RHEUMATOID ARTHRITIS
     Route: 065
  8. RITUXIMAB. [Suspect]
     Active Substance: RITUXIMAB
     Indication: RHEUMATOID ARTHRITIS
     Route: 042
  9. APO-LEFLUNOMIDE [Suspect]
     Active Substance: LEFLUNOMIDE
     Indication: RHEUMATOID ARTHRITIS
     Route: 065
  10. SULFASALAZINE. [Concomitant]
     Active Substance: SULFASALAZINE
     Route: 065
  11. ALEVE [Concomitant]
     Active Substance: NAPROXEN SODIUM
     Dosage: AS NEEDED
     Route: 065
  12. BUPROPION. [Concomitant]
     Active Substance: BUPROPION
     Route: 065
  13. HUMIRA [Suspect]
     Active Substance: ADALIMUMAB
     Route: 058
  14. REMICADE [Suspect]
     Active Substance: INFLIXIMAB
     Indication: RHEUMATOID ARTHRITIS
     Route: 042
  15. HYDROXYCHLOROQUINE [Suspect]
     Active Substance: HYDROXYCHLOROQUINE
     Route: 065
  16. HYDROXYCHLOROQUINE SULFATE. [Suspect]
     Active Substance: HYDROXYCHLOROQUINE SULFATE
     Indication: RHEUMATOID ARTHRITIS
     Route: 065
  17. PLAQUENIL [Suspect]
     Active Substance: HYDROXYCHLOROQUINE SULFATE
     Indication: RHEUMATOID ARTHRITIS
     Route: 065
  18. PLAQUENIL [Suspect]
     Active Substance: HYDROXYCHLOROQUINE SULFATE
     Route: 048
  19. METHOTREXATE (TRADE NAME UNKNOWN) [Suspect]
     Active Substance: METHOTREXATE
     Indication: RHEUMATOID ARTHRITIS
     Route: 065
  20. PREDNISONE. [Concomitant]
     Active Substance: PREDNISONE
     Route: 065
  21. METHOTREXATE (TRADE NAME UNKNOWN) [Suspect]
     Active Substance: METHOTREXATE
     Route: 065
  22. RITUXAN [Suspect]
     Active Substance: RITUXIMAB
     Route: 065
  23. ENBREL [Suspect]
     Active Substance: ETANERCEPT
     Route: 058
  24. RITUXAN [Suspect]
     Active Substance: RITUXIMAB
     Indication: RHEUMATOID ARTHRITIS
     Route: 042
  25. APO-LEFLUNOMIDE [Suspect]
     Active Substance: LEFLUNOMIDE
     Route: 065
  26. XELJANZ [Concomitant]
     Active Substance: TOFACITINIB CITRATE
     Route: 065
  27. METHOTREXATE (TRADE NAME UNKNOWN) [Suspect]
     Active Substance: METHOTREXATE
     Route: 065
  28. LEFLUNOMIDE. [Suspect]
     Active Substance: LEFLUNOMIDE
     Route: 065
  29. RITUXAN [Suspect]
     Active Substance: RITUXIMAB
     Route: 065
  30. SIMPONI [Concomitant]
     Active Substance: GOLIMUMAB
     Route: 058
  31. SIMPONI [Concomitant]
     Active Substance: GOLIMUMAB
     Route: 065
  32. ENBREL [Suspect]
     Active Substance: ETANERCEPT
     Dosage: Q2WK
     Route: 065
  33. ACTEMRA [Suspect]
     Active Substance: TOCILIZUMAB
     Indication: RHEUMATOID ARTHRITIS
     Route: 065
  34. ACTEMRA [Suspect]
     Active Substance: TOCILIZUMAB
     Route: 058
  35. ACTEMRA [Suspect]
     Active Substance: TOCILIZUMAB
     Route: 065
  36. HUMIRA [Suspect]
     Active Substance: ADALIMUMAB
     Route: 058
  37. LEFLUNOMIDE. [Suspect]
     Active Substance: LEFLUNOMIDE
     Route: 065
  38. LEFLUNOMIDE. [Suspect]
     Active Substance: LEFLUNOMIDE
     Route: 065
  39. HYDROXYCHLOROQUINE [Suspect]
     Active Substance: HYDROXYCHLOROQUINE
     Indication: RHEUMATOID ARTHRITIS
     Route: 065
  40. HYDROXYCHLOROQUINE [Suspect]
     Active Substance: HYDROXYCHLOROQUINE
     Route: 065
  41. ARAVA [Concomitant]
     Active Substance: LEFLUNOMIDE
     Route: 065
  42. XELJANZ [Concomitant]
     Active Substance: TOFACITINIB CITRATE
     Route: 048
  43. METHOTREXATE (TRADE NAME UNKNOWN) [Suspect]
     Active Substance: METHOTREXATE
     Dosage: MG
     Route: 065
  44. HUMIRA [Suspect]
     Active Substance: ADALIMUMAB
     Dosage: Q2WK
     Route: 058
  45. REMICADE [Suspect]
     Active Substance: INFLIXIMAB
     Route: 042
  46. HYDROXYCHLOROQUINE SULFATE. [Suspect]
     Active Substance: HYDROXYCHLOROQUINE SULFATE
     Route: 065
  47. ALEVE [Concomitant]
     Active Substance: NAPROXEN SODIUM
     Dosage: AS NEEDED
     Route: 065

REACTIONS (7)
  - Contraindicated product administered [Unknown]
  - Diarrhoea [Not Recovered/Not Resolved]
  - Hepatic enzyme increased [Unknown]
  - Pneumonia [Unknown]
  - Drug ineffective [Unknown]
  - Fatigue [Not Recovered/Not Resolved]
  - Rheumatoid arthritis [Unknown]

NARRATIVE: CASE EVENT DATE: 201712
